FAERS Safety Report 12376677 (Version 2)
Quarter: 2016Q2

REPORT INFORMATION
  Report Type: Report from Study
  Country: US (occurrence: US)
  Receive Date: 20160517
  Receipt Date: 20160517
  Transmission Date: 20160815
  Serious: No
  Sender: FDA-Public Use
  Company Number: US-MALLINCKRODT-T201502786

PATIENT
  Age: 51 Year
  Sex: Female

DRUGS (1)
  1. REPOSITORY CORTICOTROPIN INJECTION [Suspect]
     Active Substance: CORTICOTROPIN
     Indication: SARCOIDOSIS
     Dosage: 80 UNITS, EVERY 3 DAYS
     Route: 058
     Dates: start: 20150414

REACTIONS (7)
  - Tongue oedema [Unknown]
  - Burning sensation [Unknown]
  - Oedema peripheral [Unknown]
  - Increased appetite [Unknown]
  - Weight increased [Unknown]
  - Lip oedema [Unknown]
  - Candida infection [Unknown]

NARRATIVE: CASE EVENT DATE: 201505
